FAERS Safety Report 8824349 (Version 1)
Quarter: 2012Q4

REPORT INFORMATION
  Report Type: 
  Country: JP (occurrence: JP)
  Receive Date: 20121004
  Receipt Date: 20121004
  Transmission Date: 20130627
  Serious: Yes (Hospitalization, Other)
  Sender: FDA-Public Use
  Company Number: JP-009507513-2012SP020537

PATIENT
  Age: 56 Year
  Sex: Male
  Weight: 65 kg

DRUGS (11)
  1. PEGINTERFERON ALFA-2B [Suspect]
     Indication: HEPATITIS C
     Dosage: 0.75 ?g/kg, QW
     Route: 058
     Dates: start: 20120222, end: 20120501
  2. REBETOL [Suspect]
     Indication: HEPATITIS C
     Dosage: 200 mg, QD
     Route: 048
     Dates: start: 20120222, end: 20120501
  3. TELAVIC [Suspect]
     Indication: HEPATITIS C
     Dosage: 2250 mg, QD
     Route: 048
     Dates: start: 20120222, end: 20120225
  4. TELAVIC [Suspect]
     Dosage: 1500 mg, QD
     Route: 048
     Dates: start: 20120226, end: 20120313
  5. TELAVIC [Suspect]
     Dosage: 1000 mg, QD
     Route: 048
     Dates: start: 20120314, end: 20120501
  6. ALDACTONE A [Concomitant]
     Indication: HEPATITIS C
     Dosage: 25 mg, qd, POR
     Route: 048
  7. URSO [Concomitant]
     Indication: HEPATITIS C
     Dosage: 300 mg, qd, POR
     Route: 048
  8. LASIX (FUROSEMIDE) [Concomitant]
     Indication: HEPATITIS C
     Dosage: 20 mg, qd POR
     Route: 048
  9. CELLCEPT [Concomitant]
     Indication: PROPHYLAXIS
     Dosage: 1500 mg, qd
     Route: 048
  10. NEORAL [Concomitant]
     Indication: PROPHYLAXIS
     Dosage: 10 mg, qd, POR
     Route: 048
  11. NORVASC [Concomitant]
     Indication: HYPERTENSION
     Dosage: 10 mg, qd, POR
     Route: 048

REACTIONS (2)
  - Malaise [Recovering/Resolving]
  - Renal impairment [Not Recovered/Not Resolved]
